FAERS Safety Report 11288392 (Version 1)
Quarter: 2015Q3

REPORT INFORMATION
  Report Type: Spontaneous
  Country: US (occurrence: US)
  Receive Date: 20150721
  Receipt Date: 20150721
  Transmission Date: 20151125
  Serious: No
  Sender: FDA-Public Use
  Company Number: US-UNITED THERAPEUTICS-UNT-2015-002940

PATIENT
  Sex: Male
  Weight: 92.97 kg

DRUGS (2)
  1. REMODULIN [Suspect]
     Active Substance: TREPROSTINIL
     Indication: PULMONARY ARTERIAL HYPERTENSION
     Dosage: 0.123 ?G/KG/MIN, UNK
     Route: 041
     Dates: start: 20130524
  2. REVATIO [Concomitant]
     Active Substance: SILDENAFIL CITRATE
     Indication: PRODUCT USED FOR UNKNOWN INDICATION

REACTIONS (7)
  - Dyspnoea exertional [Not Recovered/Not Resolved]
  - Device issue [Unknown]
  - Drug dose omission [Unknown]
  - Pallor [Unknown]
  - Malaise [Unknown]
  - Myalgia [Unknown]
  - Thrombosis in device [Unknown]
